FAERS Safety Report 9374949 (Version 2)
Quarter: 2013Q3

REPORT INFORMATION
  Report Type: Spontaneous
  Country: US (occurrence: US)
  Receive Date: 20130628
  Receipt Date: 20130802
  Transmission Date: 20140515
  Serious: Yes (Hospitalization)
  Sender: FDA-Public Use
  Company Number: US-SANOFI-AVENTIS-2013SA060353

PATIENT
  Age: 58 Year
  Sex: Female
  Weight: 84.36 kg

DRUGS (4)
  1. AMBIEN [Suspect]
     Indication: SLEEP DISORDER
     Dosage: 1MG IN PM
     Route: 048
     Dates: start: 20120904, end: 20130516
  2. COPAXONE [Suspect]
     Indication: MULTIPLE SCLEROSIS
     Route: 042
     Dates: start: 20020604
  3. VITAMINS [Concomitant]
  4. ALL OTHER THERAPEUTIC PRODUCTS [Concomitant]

REACTIONS (4)
  - Fall [Recovered/Resolved]
  - Scratch [Recovered/Resolved]
  - Tenderness [Recovered/Resolved]
  - Loss of consciousness [Recovered/Resolved]
